FAERS Safety Report 4516180-3 (Version None)
Quarter: 2004Q4

REPORT INFORMATION
  Report Type: 
  Country: None (occurrence: None)
  Receive Date: 20041130
  Receipt Date: 20041130
  Transmission Date: 20050328
  Serious: Yes (Hospitalization)
  Sender: FDA-Public Use
  Company Number: None

PATIENT
  Age: 58 Year
  Sex: Male
  Weight: 56.7 kg

DRUGS (2)
  1. BACTRIM DS [Suspect]
     Indication: URINARY TRACT INFECTION
     Dosage: 800/160  BID  ORAL
     Route: 048
     Dates: start: 20040725, end: 20040727
  2. CIPRO [Suspect]
     Indication: URINARY TRACT INFECTION
     Dosage: 500MG  BID  ORAL
     Route: 048
     Dates: start: 20040723, end: 20040727

REACTIONS (1)
  - STEVENS-JOHNSON SYNDROME [None]
